FAERS Safety Report 13472840 (Version 5)
Quarter: 2017Q3

REPORT INFORMATION
  Report Type: Spontaneous
  Country: US (occurrence: US)
  Receive Date: 20170424
  Receipt Date: 20170706
  Transmission Date: 20171127
  Serious: Yes (Hospitalization, Other)
  Sender: FDA-Public Use
  Company Number: US-PFIZER INC-2017174574

PATIENT

DRUGS (17)
  1. METHYLPREDNISOLONE. [Suspect]
     Active Substance: METHYLPREDNISOLONE
     Indication: B-CELL TYPE ACUTE LEUKAEMIA
     Dosage: UNK
     Dates: start: 20151023
  2. BLINCYTO [Suspect]
     Active Substance: BLINATUMOMAB
     Indication: B-CELL TYPE ACUTE LEUKAEMIA
     Dosage: UNK
     Dates: start: 20170207
  3. ONCOVIN [Concomitant]
     Active Substance: VINCRISTINE SULFATE
     Dosage: UNK
     Dates: start: 20160711, end: 20170112
  4. METHOTREXATE SODIUM. [Suspect]
     Active Substance: METHOTREXATE SODIUM
     Dosage: UNK
     Dates: start: 20160711, end: 20170112
  5. VINCRISTINE SULFATE. [Suspect]
     Active Substance: VINCRISTINE SULFATE
     Indication: B-CELL TYPE ACUTE LEUKAEMIA
     Dosage: UNK
     Dates: start: 20151023, end: 20160524
  6. METHOTREXATE SODIUM. [Suspect]
     Active Substance: METHOTREXATE SODIUM
     Indication: B-CELL TYPE ACUTE LEUKAEMIA
     Dosage: UNK
     Dates: start: 20151023
  7. CYCLOPHOSPHAMIDE. [Suspect]
     Active Substance: CYCLOPHOSPHAMIDE
     Indication: B-CELL TYPE ACUTE LEUKAEMIA
     Dosage: UNK, CYCLIC
     Dates: start: 20151023, end: 20160524
  8. PREDNISONE. [Suspect]
     Active Substance: PREDNISONE
     Indication: B-CELL TYPE ACUTE LEUKAEMIA
     Dosage: UNK
     Dates: start: 20160711, end: 20170112
  9. CYTARABINE. [Suspect]
     Active Substance: CYTARABINE
     Indication: B-CELL TYPE ACUTE LEUKAEMIA
     Dosage: UNK
     Dates: start: 20151023
  10. BLINCYTO [Suspect]
     Active Substance: BLINATUMOMAB
     Dosage: UNK, CYCLIC
     Dates: start: 20170404
  11. HYDROXYUREA. [Suspect]
     Active Substance: HYDROXYUREA
     Indication: PROPHYLAXIS
     Dosage: UNK
     Dates: start: 20170207
  12. DOXORUBICIN HCL [Suspect]
     Active Substance: DOXORUBICIN HYDROCHLORIDE
     Indication: B-CELL TYPE ACUTE LEUKAEMIA
     Dosage: UNK, CYCLIC
     Dates: start: 20151023, end: 20160524
  13. VINCRISTINE SULFATE. [Suspect]
     Active Substance: VINCRISTINE SULFATE
     Dosage: UNK
     Dates: start: 20160711, end: 20170112
  14. 6-MERCAPTOPURINE MONOHYDRATE [Suspect]
     Active Substance: MERCAPTOPURINE
     Indication: B-CELL TYPE ACUTE LEUKAEMIA
     Dosage: UNK
     Dates: start: 20160711, end: 20170112
  15. DEXAMETHASONE. [Suspect]
     Active Substance: DEXAMETHASONE
     Indication: B-CELL TYPE ACUTE LEUKAEMIA
     Dosage: UNK, CYCLIC
     Dates: start: 20151023, end: 20160524
  16. PURINETHOL [Concomitant]
     Active Substance: MERCAPTOPURINE
     Dosage: UNK
     Dates: start: 20160711, end: 20170112
  17. FOLINIC ACID [Suspect]
     Active Substance: LEUCOVORIN
     Indication: B-CELL TYPE ACUTE LEUKAEMIA
     Dosage: UNK
     Dates: start: 20151023

REACTIONS (13)
  - Malnutrition [Unknown]
  - Tumour lysis syndrome [Unknown]
  - Renal injury [Unknown]
  - Lung infiltration [Unknown]
  - Haematuria [Unknown]
  - Transaminases increased [Unknown]
  - Pleural effusion [Unknown]
  - Neoplasm progression [Unknown]
  - Febrile neutropenia [Unknown]
  - Bacterial diarrhoea [Unknown]
  - Hypoxia [Unknown]
  - Cytokine release syndrome [Unknown]
  - Asthenia [Unknown]

NARRATIVE: CASE EVENT DATE: 201702
